FAERS Safety Report 17241854 (Version 1)
Quarter: 2020Q3

REPORT INFORMATION
  Report Type: Spontaneous
  Country: TH (occurrence: TH)
  Receive Date: 20200107
  Receipt Date: 20200107
  Transmission Date: 20201104
  Serious: Yes (Other)
  Sender: FDA-Public Use
  Company Number: TH-ROCHE-2387027

PATIENT
  Age: 57 Year
  Sex: Female

DRUGS (1)
  1. ALECTINIB. [Suspect]
     Active Substance: ALECTINIB
     Indication: NON-SMALL CELL LUNG CANCER
     Route: 048
     Dates: start: 20171010

REACTIONS (5)
  - Anaemia [Unknown]
  - Salmonella sepsis [Unknown]
  - Arthritis bacterial [Unknown]
  - Sinus bradycardia [Unknown]
  - Thrombocytopenia [Unknown]

NARRATIVE: CASE EVENT DATE: 20171011
